FAERS Safety Report 4713759-0 (Version None)
Quarter: 2005Q3

REPORT INFORMATION
  Report Type: 
  Country: None (occurrence: None)
  Receive Date: 20050712
  Receipt Date: 20050701
  Transmission Date: 20060218
  Serious: Yes (Hospitalization)
  Sender: FDA-Public Use
  Company Number: TPA2005A00228

PATIENT
  Age: 49 Year
  Sex: Female
  Weight: 130.1823 kg

DRUGS (11)
  1. ACTOS [Suspect]
     Indication: DIABETES MELLITUS NON-INSULIN-DEPENDENT
     Dosage: 15 MG, 2 IN 1 D, PER ORAL
     Route: 048
     Dates: start: 20020401
  2. OXYCONTIN [Concomitant]
  3. GLYBURIDE [Concomitant]
  4. PAROXETINE HCL [Concomitant]
  5. TIZANIDINE HCL [Concomitant]
  6. LISINOPRIL [Concomitant]
  7. TRIAM/HCTZ (DYAZIDE) [Concomitant]
  8. RANITIDINE [Concomitant]
  9. NEURONTIN [Concomitant]
  10. ALPRAZOLAM [Concomitant]
  11. METFORMIN HCL [Concomitant]

REACTIONS (6)
  - ANAEMIA [None]
  - EXOSTOSIS [None]
  - FALL [None]
  - PAIN [None]
  - ROTATOR CUFF SYNDROME [None]
  - THROMBOSIS [None]
